FAERS Safety Report 7270071-6 (Version None)
Quarter: 2011Q1

REPORT INFORMATION
  Report Type: 
  Country: None (occurrence: None)
  Receive Date: 20110202
  Receipt Date: 20110119
  Transmission Date: 20110831
  Serious: Yes (Other)
  Sender: FDA-Public Use
  Company Number: DE-ROCHE-756623

PATIENT
  Sex: Female

DRUGS (5)
  1. AVASTIN [Suspect]
     Route: 042
     Dates: start: 20080601
  2. ZOMETA [Suspect]
     Dosage: MONOTHERAPY
     Route: 065
     Dates: start: 20040101, end: 20080601
  3. ZOMETA [Suspect]
     Dosage: TOGETHER WITH BEVACIZUMAB
     Route: 065
     Dates: start: 20080601, end: 20100801
  4. AVASTIN [Suspect]
     Dosage: LAST APPLICATION TOOK PLACE ON 5-JAN-2011
     Route: 042
  5. TAXOL [Concomitant]
     Dates: start: 20080601

REACTIONS (6)
  - IMPAIRED HEALING [None]
  - OSTEONECROSIS [None]
  - ARTHRALGIA [None]
  - HYPERTENSION [None]
  - MUSCULAR WEAKNESS [None]
  - PROTEINURIA [None]
